FAERS Safety Report 6801923-6 (Version None)
Quarter: 2010Q2

REPORT INFORMATION
  Report Type: 
  Country: None (occurrence: None)
  Receive Date: 20100629
  Receipt Date: 20100623
  Transmission Date: 20101027
  Serious: Yes (Hospitalization)
  Sender: FDA-Public Use
  Company Number: ES-PFIZER INC-2010074538

PATIENT
  Age: 6 Year
  Sex: Female
  Weight: 10.9 kg

DRUGS (3)
  1. SOMATROPIN [Suspect]
     Indication: RENAL FAILURE
     Dosage: 0.6 MG, DAILY
     Route: 030
     Dates: start: 20050930
  2. ETALPHA [Concomitant]
     Indication: HYPERPARATHYROIDISM
     Dosage: UNK
     Route: 048
     Dates: start: 20050930
  3. GLUTAFERRO [Concomitant]
     Indication: HYPOVITAMINOSIS
     Dosage: UNK
     Route: 048
     Dates: start: 20050930

REACTIONS (1)
  - CEREBROVASCULAR ACCIDENT [None]
